FAERS Safety Report 8013009-6 (Version None)
Quarter: 2011Q4

REPORT INFORMATION
  Report Type: 
  Country: None (occurrence: None)
  Receive Date: 20111229
  Receipt Date: 20111219
  Transmission Date: 20120403
  Serious: Yes (Death)
  Sender: FDA-Public Use
  Company Number: US-PFIZER INC-2011310024

PATIENT
  Age: 41 Year
  Sex: Female

DRUGS (2)
  1. ALPRAZOLAM [Suspect]
  2. METHADONE HCL [Suspect]

REACTIONS (4)
  - COMPLETED SUICIDE [None]
  - TOXICITY TO VARIOUS AGENTS [None]
  - CARDIAC ARREST [None]
  - RESPIRATORY ARREST [None]
